FAERS Safety Report 13999845 (Version 1)
Quarter: 2017Q3

REPORT INFORMATION
  Report Type: Report from Study
  Country: KR (occurrence: KR)
  Receive Date: 20170922
  Receipt Date: 20170922
  Transmission Date: 20171128
  Serious: Yes (Hospitalization, Other)
  Sender: FDA-Public Use
  Company Number: KR-ROCHE-1994832

PATIENT

DRUGS (4)
  1. LEUCOVORIN. [Suspect]
     Active Substance: LEUCOVORIN
     Indication: MALIGNANT NEOPLASM OF AMPULLA OF VATER
     Route: 065
  2. TITANIUM SILICATE-1 [Suspect]
     Active Substance: TITANIUM
     Indication: MALIGNANT NEOPLASM OF AMPULLA OF VATER
     Route: 065
  3. CAPECITABINE. [Suspect]
     Active Substance: CAPECITABINE
     Indication: MALIGNANT NEOPLASM OF AMPULLA OF VATER
     Route: 048
  4. 5-FLUOROURACIL [Suspect]
     Active Substance: FLUOROURACIL
     Indication: MALIGNANT NEOPLASM OF AMPULLA OF VATER
     Route: 042

REACTIONS (8)
  - Nausea [Unknown]
  - Diarrhoea [Unknown]
  - Portal vein occlusion [Unknown]
  - Vomiting [Unknown]
  - Leukopenia [Unknown]
  - Fibrosis [Unknown]
  - Anaemia [Unknown]
  - Intestinal obstruction [Unknown]
